FAERS Safety Report 9443634 (Version 2)
Quarter: 2013Q3

REPORT INFORMATION
  Report Type: Spontaneous
  Country: US (occurrence: US)
  Receive Date: 20130806
  Receipt Date: 20130927
  Transmission Date: 20140515
  Serious: No
  Sender: FDA-Public Use
  Company Number: US-PFIZER INC-2013224545

PATIENT
  Age: 60 Year
  Sex: Male
  Weight: 117.91 kg

DRUGS (4)
  1. VIAGRA [Suspect]
     Indication: ERECTILE DYSFUNCTION
     Dosage: 100 MG, AS NEEDED
     Route: 048
     Dates: start: 2011
  2. TRAMADOL [Concomitant]
     Indication: PAIN
     Dosage: UNK
  3. RESTORIL [Concomitant]
     Indication: SLEEP DISORDER
     Dosage: UNK
  4. GEODON [Concomitant]
     Dosage: 80 MG, UNK

REACTIONS (1)
  - Blood cholesterol increased [Unknown]
